FAERS Safety Report 6582660-2 (Version None)
Quarter: 2010Q1

REPORT INFORMATION
  Report Type: 
  Country: None (occurrence: None)
  Receive Date: 20100216
  Receipt Date: 20100208
  Transmission Date: 20100710
  Serious: Yes (Hospitalization)
  Sender: FDA-Public Use
  Company Number: US-ASTRAZENECA-2010SE05559

PATIENT
  Age: 552 Month
  Sex: Female
  Weight: 102.1 kg

DRUGS (8)
  1. SYMBICORT [Suspect]
     Indication: CHRONIC OBSTRUCTIVE PULMONARY DISEASE
     Route: 055
     Dates: start: 20090101, end: 20100101
  2. COMBIVENT [Concomitant]
  3. LEXAPRO [Concomitant]
  4. CELEXA [Concomitant]
  5. DOXYCYCLINE [Concomitant]
  6. KLONOPIN [Concomitant]
  7. XANAX [Concomitant]
  8. TRAZODONE HCL [Concomitant]

REACTIONS (2)
  - COLLAPSE OF LUNG [None]
  - DRUG DOSE OMISSION [None]
